FAERS Safety Report 10686986 (Version 2)
Quarter: 2015Q1

REPORT INFORMATION
  Report Type: Spontaneous
  Country: US (occurrence: US)
  Receive Date: 20150102
  Receipt Date: 20150130
  Transmission Date: 20150720
  Serious: Yes (Hospitalization, Other)
  Sender: FDA-Public Use
  Company Number: US-PFIZER INC-2014360164

PATIENT
  Age: 75 Year
  Sex: Male
  Weight: 116 kg

DRUGS (4)
  1. IRON [Suspect]
     Active Substance: IRON
  2. REVATIO [Suspect]
     Active Substance: SILDENAFIL CITRATE
     Dosage: 20 MG, EVERY 8 HOURS
     Route: 048
     Dates: start: 2012
  3. COUMADIN [Suspect]
     Active Substance: WARFARIN SODIUM
     Indication: ATRIAL FIBRILLATION
     Dosage: 2.5 MG, 6 DAYS/WEEK
     Route: 048
  4. COUMADIN [Suspect]
     Active Substance: WARFARIN SODIUM
     Dosage: 5 MG, ONE DAY/WEEK
     Route: 048

REACTIONS (4)
  - Lower gastrointestinal haemorrhage [Recovered/Resolved]
  - Constipation [Unknown]
  - Large intestinal haemorrhage [Unknown]
  - Haematocrit decreased [Unknown]

NARRATIVE: CASE EVENT DATE: 20140917
